FAERS Safety Report 10728353 (Version 2)
Quarter: 2015Q1

REPORT INFORMATION
  Report Type: Spontaneous
  Country: NL (occurrence: NL)
  Receive Date: 20150121
  Receipt Date: 20150127
  Transmission Date: 20150721
  Serious: Yes (Other)
  Sender: FDA-Public Use
  Company Number: NL-ROCHE-1523964

PATIENT
  Sex: Female

DRUGS (3)
  1. CICLOSPORINE [Concomitant]
     Active Substance: CYCLOSPORINE
     Dosage: DOSERING EN TOEDIENINGSVORM NIET INGEVULD
     Route: 065
     Dates: start: 1997
  2. CELLCEPT [Suspect]
     Active Substance: MYCOPHENOLATE MOFETIL\MYCOPHENOLATE MOFETIL HYDROCHLORIDE
     Indication: RENAL TRANSPLANT
     Dosage: DOSERING NIET INGEVULD
     Route: 048
     Dates: start: 1997
  3. PREDNISON [Concomitant]
     Active Substance: PREDNISONE
     Dosage: DOSERING EN TOEDIENINGSVORM NIET INGEVULD
     Route: 065
     Dates: start: 1997

REACTIONS (1)
  - Bronchiectasis [Unknown]
